FAERS Safety Report 7075281-9 (Version None)
Quarter: 2010Q4

REPORT INFORMATION
  Report Type: 
  Country: None (occurrence: None)
  Receive Date: 20101030
  Receipt Date: 20100913
  Transmission Date: 20110411
  Serious: No
  Sender: FDA-Public Use
  Company Number: US-WYE-H16566410

PATIENT
  Sex: Female
  Weight: 68.1 kg

DRUGS (4)
  1. ADVIL PM [Suspect]
     Indication: INSOMNIA
     Dosage: UNKNOWN
     Route: 048
  2. CHANTIX [Interacting]
     Indication: SMOKING CESSATION THERAPY
     Route: 048
     Dates: start: 20090201
  3. CHANTIX [Interacting]
     Route: 048
  4. CHANTIX [Interacting]
     Route: 048
     Dates: start: 20100701

REACTIONS (3)
  - BALANCE DISORDER [None]
  - DIZZINESS [None]
  - DRUG INTERACTION [None]
